FAERS Safety Report 8438918-5 (Version None)
Quarter: 2012Q2

REPORT INFORMATION
  Report Type: 
  Country: None (occurrence: None)
  Receive Date: 20120615
  Receipt Date: 20120606
  Transmission Date: 20120825
  Serious: Yes (Other)
  Sender: FDA-Public Use
  Company Number: JP-JNJFOC-20120104585

PATIENT
  Sex: Female
  Weight: 66 kg

DRUGS (9)
  1. TRAMADOL HYDROCHLORIDE/ACETAMINOPHEN [Suspect]
     Dosage: 8 DOSES X 1 PER 1 DAY
     Route: 048
     Dates: start: 20110914, end: 20111208
  2. FENTANYL-100 [Suspect]
     Indication: PAIN
     Route: 062
     Dates: start: 20111208, end: 20111214
  3. LYRICA [Concomitant]
     Indication: PAIN
     Route: 048
  4. AMITRIPTYLINE HYDROCHLORIDE [Concomitant]
     Indication: PAIN
     Route: 065
  5. MAGMITT [Concomitant]
     Indication: PROPHYLAXIS
     Route: 065
  6. TRAMADOL HYDROCHLORIDE/ACETAMINOPHEN [Suspect]
     Indication: PAIN
     Dosage: 1 DF X 1 PER 1 DAY
     Route: 048
     Dates: start: 20111208, end: 20111208
  7. LIDOCAINE [Concomitant]
     Indication: PAIN
     Route: 042
  8. FENTANYL-100 [Suspect]
     Route: 062
     Dates: start: 20111214, end: 20111228
  9. SENNOSIDE [Concomitant]
     Route: 065
     Dates: start: 20111219, end: 20111228

REACTIONS (5)
  - CONSTIPATION [None]
  - WITHDRAWAL SYNDROME [None]
  - MALAISE [None]
  - PALPITATIONS [None]
  - HYPERHIDROSIS [None]
